FAERS Safety Report 17303468 (Version 1)
Quarter: 2020Q1

REPORT INFORMATION
  Report Type: Spontaneous
  Country: DE (occurrence: DE)
  Receive Date: 20200122
  Receipt Date: 20200122
  Transmission Date: 20200409
  Serious: Yes (Other)
  Sender: FDA-Public Use
  Company Number: DE-DSJP-DSE-2020-101798

PATIENT

DRUGS (2)
  1. LIXIANA [Suspect]
     Active Substance: EDOXABAN TOSYLATE
     Dosage: 30 MG
     Route: 048
     Dates: start: 2019
  2. LIXIANA [Suspect]
     Active Substance: EDOXABAN TOSYLATE
     Indication: ATRIAL FIBRILLATION
     Dosage: 60 MG
     Route: 048

REACTIONS (2)
  - Pulmonary oedema [Unknown]
  - Incorrect dose administered [Unknown]

NARRATIVE: CASE EVENT DATE: 2019
